FAERS Safety Report 5167115-4 (Version None)
Quarter: 2006Q4

REPORT INFORMATION
  Report Type: 
  Country: None (occurrence: None)
  Receive Date: 20061207
  Receipt Date: 20061201
  Transmission Date: 20070319
  Serious: Yes (Life-Threatening, Hospitalization)
  Sender: FDA-Public Use
  Company Number: FR-GLAXOSMITHKLINE-B0449148A

PATIENT
  Age: 63 Year
  Sex: Male

DRUGS (5)
  1. AUGMENTIN '125' [Suspect]
     Indication: DENTAL CARE
     Dosage: 3G PER DAY
     Route: 048
     Dates: start: 20061106, end: 20061106
  2. DAFLON [Concomitant]
     Route: 048
  3. PERMIXON [Concomitant]
     Route: 048
  4. COTAREG [Concomitant]
     Route: 048
  5. ZANIDIP [Concomitant]
     Route: 048

REACTIONS (12)
  - ANAPHYLACTIC SHOCK [None]
  - ANKLE FRACTURE [None]
  - BLOOD PRESSURE DECREASED [None]
  - BODY TEMPERATURE DECREASED [None]
  - FALL [None]
  - GENERALISED ERYTHEMA [None]
  - HOT FLUSH [None]
  - HYPOPHOSPHATAEMIA [None]
  - LOSS OF CONSCIOUSNESS [None]
  - RASH MACULO-PAPULAR [None]
  - SYNCOPE [None]
  - TACHYCARDIA [None]
